FAERS Safety Report 8524948-1 (Version None)
Quarter: 2012Q3

REPORT INFORMATION
  Report Type: 
  Country: None (occurrence: None)
  Receive Date: 20120720
  Receipt Date: 20120716
  Transmission Date: 20120928
  Serious: Yes (Hospitalization)
  Sender: FDA-Public Use
  Company Number: US-009507513-1202USA02450

PATIENT

DRUGS (16)
  1. FOSAMAX [Suspect]
  2. LEXAPRO [Concomitant]
  3. XANAX [Concomitant]
  4. FOSAMAX [Suspect]
     Indication: OSTEOPOROSIS
  5. REMICADE [Concomitant]
  6. EVISTA [Concomitant]
     Dosage: 60 MG, QD
  7. SELECTIVE ESTROGEN RECEPTOR MODULATOR (UNSPECIFIED) [Concomitant]
     Dosage: 1 MG, QD
     Dates: start: 20030101
  8. FOSAMAX [Suspect]
     Indication: OSTEOPENIA
     Dosage: 70 MG, QW
     Route: 048
     Dates: start: 20050201, end: 20080201
  9. FOSAMAX [Suspect]
     Dosage: 70 MG, QW
     Route: 048
     Dates: start: 20080303, end: 20100201
  10. FOLIC ACID [Concomitant]
     Dosage: 1 MG, QD
     Dates: start: 20030101
  11. RESTORIL (CHLORMEZANONE) [Concomitant]
  12. SULFASALAZINE [Concomitant]
     Indication: RHEUMATOID ARTHRITIS
     Dosage: 1000 MG, BID
     Route: 048
  13. ALENDRONATE SODIUM [Suspect]
     Dosage: 70 MG, QW
     Dates: start: 20080624
  14. PREVACID [Concomitant]
     Dosage: 30 MG, QD
  15. PLAQUENIL [Concomitant]
     Indication: RHEUMATOID ARTHRITIS
     Dosage: ORAL200 MG, BID
     Route: 048
  16. CYCLOBENZAPRINE HCL [Concomitant]
     Indication: RHEUMATOID ARTHRITIS
     Dosage: 15 MG, QD

REACTIONS (37)
  - MUMPS [None]
  - INGROWING NAIL [None]
  - LIVER FUNCTION TEST ABNORMAL [None]
  - SINUS DISORDER [None]
  - LOW TURNOVER OSTEOPATHY [None]
  - TONSILLITIS [None]
  - FIBROMYALGIA [None]
  - PARONYCHIA [None]
  - MASS [None]
  - ADVERSE EVENT [None]
  - ARTHROSCOPY [None]
  - MEASLES [None]
  - PSORIASIS [None]
  - ONYCHOMYCOSIS [None]
  - FEMUR FRACTURE [None]
  - BRONCHITIS [None]
  - CELLULITIS [None]
  - HYPERTENSION [None]
  - ANXIETY [None]
  - CONSTIPATION [None]
  - MUSCLE SPASMS [None]
  - RASH [None]
  - ARTHRALGIA [None]
  - VITAMIN D DEFICIENCY [None]
  - VARICELLA [None]
  - CHRONIC OBSTRUCTIVE PULMONARY DISEASE [None]
  - HYPERCHOLESTEROLAEMIA [None]
  - INSOMNIA [None]
  - RIB FRACTURE [None]
  - SKIN FISSURES [None]
  - LUMBAR RADICULOPATHY [None]
  - ALOPECIA [None]
  - ABDOMINAL DISCOMFORT [None]
  - HAEMORRHOIDS [None]
  - FOOT DEFORMITY [None]
  - TREMOR [None]
  - TACHYCARDIA [None]
